FAERS Safety Report 5219576-X (Version None)
Quarter: 2007Q1

REPORT INFORMATION
  Report Type: 
  Country: None (occurrence: None)
  Receive Date: 20070124
  Receipt Date: 20070124
  Transmission Date: 20070707
  Serious: Yes (Death)
  Sender: FDA-Public Use
  Company Number: None

PATIENT
  Age: 26 Year
  Sex: Male
  Weight: 68.0396 kg

DRUGS (2)
  1. METHADONE 40 MIL [Suspect]
     Indication: DEPENDENCE
     Dates: start: 19990501, end: 20061217
  2. KLONIBIN [Suspect]
     Indication: ANXIETY
     Dates: start: 20061213, end: 20061216

REACTIONS (5)
  - ACCIDENT [None]
  - AMNESIA [None]
  - DRUG DEPENDENCE [None]
  - HEAD INJURY [None]
  - MENTAL DISORDER [None]
